FAERS Safety Report 15575532 (Version 2)
Quarter: 2018Q4

REPORT INFORMATION
  Report Type: Report from Study
  Country: CN (occurrence: CN)
  Receive Date: 20181101
  Receipt Date: 20181106
  Transmission Date: 20190205
  Serious: Yes (Hospitalization)
  Sender: FDA-Public Use
  Company Number: CN-AMGEN-CHNCT2018151812

PATIENT
  Age: 61 Year
  Sex: Male
  Weight: 74.8 kg

DRUGS (6)
  1. ROCALTROL [Concomitant]
     Active Substance: CALCITRIOL
     Dosage: 0.25 MUG, UNK
     Route: 048
     Dates: start: 201807, end: 20180901
  2. HEPARIN [Concomitant]
     Active Substance: HEPARIN SODIUM
     Dosage: 3200 UNK, UNK
     Route: 042
     Dates: start: 201201, end: 20180906
  3. LANTHANUM CARBONATE. [Concomitant]
     Active Substance: LANTHANUM CARBONATE
     Dosage: 1 UNK, UNK
     Route: 048
     Dates: start: 20180901
  4. LEVOCARNITINE. [Concomitant]
     Active Substance: LEVOCARNITINE
     Dosage: 1 G, UNK
     Route: 042
     Dates: start: 201201
  5. CINACALCET HCL [Suspect]
     Active Substance: CINACALCET HYDROCHLORIDE
     Indication: HYPERPARATHYROIDISM SECONDARY
     Dosage: UNK
     Route: 042
     Dates: start: 20181018
  6. RECOMBINANT HUMAN ERYTHROPOIETIN [Concomitant]
     Active Substance: ERYTHROPOIETIN
     Dosage: 2000 UNK, UNK
     Route: 042
     Dates: start: 201201

REACTIONS (1)
  - Jaundice cholestatic [Not Recovered/Not Resolved]

NARRATIVE: CASE EVENT DATE: 20181023
